FAERS Safety Report 7213632-2 (Version None)
Quarter: 2011Q1

REPORT INFORMATION
  Report Type: 
  Country: None (occurrence: None)
  Receive Date: 20110106
  Receipt Date: 20101230
  Transmission Date: 20110831
  Serious: Yes (Other)
  Sender: FDA-Public Use
  Company Number: US-JNJCH-2010027180

PATIENT
  Sex: Female

DRUGS (2)
  1. DRUG, UNSPECIFIED [Concomitant]
     Indication: PROPHYLAXIS
     Dosage: TEXT:UNSPECIFIED
     Route: 065
  2. LISTERINE WHITENING QUICK DISSOLVING STRIPS [Suspect]
     Indication: PRODUCT USED FOR UNKNOWN INDICATION
     Dosage: TEXT:UNKNOWN
     Route: 048

REACTIONS (2)
  - PRODUCT QUALITY ISSUE [None]
  - GINGIVAL BLISTER [None]
